FAERS Safety Report 5395646-0 (Version None)
Quarter: 2007Q3

REPORT INFORMATION
  Report Type: 
  Country: None (occurrence: None)
  Receive Date: 20070720
  Receipt Date: 20070706
  Transmission Date: 20080115
  Serious: Yes (Disabling)
  Sender: FDA-Public Use
  Company Number: 2007-158191-NL

PATIENT
  Age: 66 Year
  Sex: Female

DRUGS (4)
  1. MIRTAZAPINE [Suspect]
     Indication: DEPRESSION
     Dosage: 15 MG QD ORAL
     Route: 048
     Dates: start: 20070301
  2. MIRTAZAPINE [Suspect]
     Indication: INSOMNIA
     Dosage: 15 MG QD ORAL
     Route: 048
     Dates: start: 20070301
  3. PREGABALIN [Suspect]
     Indication: ANXIETY
     Dosage: 75 MG TID ORAL
     Route: 048
     Dates: start: 20070301
  4. PREGABALIN [Suspect]
     Indication: PAIN
     Dosage: 75 MG TID ORAL
     Route: 048
     Dates: start: 20070301

REACTIONS (5)
  - BLISTER [None]
  - DIABETIC NEUROPATHY [None]
  - NERVE DEGENERATION [None]
  - PERONEAL NERVE PALSY [None]
  - SKIN ULCER [None]
